FAERS Safety Report 4945816-8 (Version None)
Quarter: 2006Q1

REPORT INFORMATION
  Report Type: 
  Country: None (occurrence: None)
  Receive Date: 20060316
  Receipt Date: 20060309
  Transmission Date: 20060701
  Serious: Yes (Hospitalization)
  Sender: FDA-Public Use
  Company Number: 2006SE01427

PATIENT
  Age: 20320 Day
  Sex: Female

DRUGS (3)
  1. ANTRA [Suspect]
     Route: 048
     Dates: start: 20060227, end: 20060227
  2. OCTEGRA [Suspect]
     Route: 048
     Dates: start: 20060227, end: 20060227
  3. XANAX [Suspect]
     Route: 048
     Dates: start: 20060227, end: 20060227

REACTIONS (1)
  - ANAPHYLACTIC SHOCK [None]
